FAERS Safety Report 23525851 (Version 2)
Quarter: 2024Q1

REPORT INFORMATION
  Report Type: Spontaneous
  Country: US (occurrence: US)
  Receive Date: 20240215
  Receipt Date: 20240319
  Transmission Date: 20240410
  Serious: No
  Sender: FDA-Public Use
  Company Number: US-SA-SAC20240207001531

PATIENT
  Age: 29 Year
  Sex: Male
  Weight: 270 kg

DRUGS (9)
  1. DUPIXENT [Suspect]
     Active Substance: DUPILUMAB
     Indication: Dermatitis atopic
     Dosage: 600 MG, 1X
     Route: 058
     Dates: start: 20240130, end: 20240130
  2. DUPIXENT [Suspect]
     Active Substance: DUPILUMAB
     Dosage: 300 MG, QOW
     Route: 058
     Dates: start: 202402
  3. MUPIROCIN [Concomitant]
     Active Substance: MUPIROCIN
     Dosage: UNK
  4. TRIAMCINOLONE ACETONIDE [Concomitant]
     Active Substance: TRIAMCINOLONE ACETONIDE
     Dosage: UNK
  5. ADULT MULTIVITAMIN [Concomitant]
     Dosage: UNK
  6. FISH OIL\OMEGA-3 FATTY ACIDS [Concomitant]
     Active Substance: FISH OIL\OMEGA-3 FATTY ACIDS
     Dosage: UNK
  7. PROBIOTICS NOS [Concomitant]
     Active Substance: PROBIOTICS NOS
     Dosage: UNK
  8. COVID-19 VACCINE [Concomitant]
     Indication: Immunisation
     Dosage: UNK
  9. INFLUENZA VIRUS VACCINE [Concomitant]
     Active Substance: INFLUENZA VIRUS VACCINE
     Indication: Immunisation
     Dosage: UNK

REACTIONS (13)
  - Skin plaque [Unknown]
  - Injection site urticaria [Recovered/Resolved]
  - Lentigo [Unknown]
  - Melanocytic naevus [Unknown]
  - Haemangioma of skin [Unknown]
  - Seborrhoeic keratosis [Unknown]
  - Tinea pedis [Unknown]
  - Injection site pain [Recovered/Resolved]
  - Dermatitis atopic [Unknown]
  - Erythema [Unknown]
  - Rash [Unknown]
  - Macule [Unknown]
  - Papule [Unknown]

NARRATIVE: CASE EVENT DATE: 20240101
